FAERS Safety Report 14140159 (Version 1)
Quarter: 2017Q4

REPORT INFORMATION
  Report Type: Spontaneous
  Country: US (occurrence: US)
  Receive Date: 20171030
  Receipt Date: 20171030
  Transmission Date: 20180321
  Serious: No
  Sender: FDA-Public Use
  Company Number: US-009507513-1710USA011492

PATIENT
  Age: 27 Year
  Sex: Female
  Weight: 84.81 kg

DRUGS (2)
  1. VITAMINS (UNSPECIFIED) [Concomitant]
     Active Substance: VITAMINS
     Dosage: UNK
  2. NEXPLANON [Suspect]
     Active Substance: ETONOGESTREL
     Indication: CONTRACEPTION
     Dosage: 3 YEARS IMPLANT- LEFT ARM
     Route: 059
     Dates: start: 20171016

REACTIONS (1)
  - Breast feeding [Unknown]
